FAERS Safety Report 20205336 (Version 9)
Quarter: 2023Q1

REPORT INFORMATION
  Report Type: Report from Study
  Country: KR (occurrence: KR)
  Receive Date: 20211220
  Receipt Date: 20230124
  Transmission Date: 20230418
  Serious: Yes (Death, Hospitalization)
  Sender: FDA-Public Use
  Company Number: KR-GLAXOSMITHKLINE-KR2021237393

PATIENT

DRUGS (47)
  1. BELANTAMAB MAFODOTIN [Suspect]
     Active Substance: BELANTAMAB MAFODOTIN
     Indication: Plasma cell myeloma
     Dosage: 167.50 MG, CYC (2.50 MG/KG )
     Route: 042
     Dates: start: 20210511, end: 20210803
  2. BELANTAMAB MAFODOTIN [Suspect]
     Active Substance: BELANTAMAB MAFODOTIN
     Dosage: 127.30 MG, CYC (1.90 MG/KG)
     Route: 042
     Dates: start: 20211013, end: 20211013
  3. BORTEZOMIB [Suspect]
     Active Substance: BORTEZOMIB
     Indication: Plasma cell myeloma
     Dosage: 2.24 MG, CYC (1.30 MG/M2)
     Route: 058
     Dates: start: 20210511, end: 20210521
  4. BORTEZOMIB [Suspect]
     Active Substance: BORTEZOMIB
     Dosage: 1.72  MG, CYC (1.00 MG/M2)
     Route: 058
     Dates: start: 20210601, end: 20210702
  5. BORTEZOMIB [Suspect]
     Active Substance: BORTEZOMIB
     Dosage: 1.20 MG, CYC (0.70 MG/M2)
     Route: 058
     Dates: start: 20210719
  6. BORTEZOMIB [Suspect]
     Active Substance: BORTEZOMIB
     Dosage: 1.20 MG, CYC (0.70 MG/M2)
     Route: 058
     Dates: start: 20210803, end: 20211025
  7. DEXAMETHASONE [Suspect]
     Active Substance: DEXAMETHASONE
     Indication: Plasma cell myeloma
     Dosage: 20 MG, CYC
     Route: 042
     Dates: start: 20210511, end: 20210511
  8. DEXAMETHASONE [Suspect]
     Active Substance: DEXAMETHASONE
     Indication: Plasma cell myeloma
     Dosage: 20 MG, CYC
     Route: 048
     Dates: start: 20210512, end: 20210519
  9. DEXAMETHASONE [Suspect]
     Active Substance: DEXAMETHASONE
     Dosage: 20 MG, CYC
     Route: 048
     Dates: start: 20210601
  10. DEXAMETHASONE [Suspect]
     Active Substance: DEXAMETHASONE
     Dosage: 20 MG, CYC
     Route: 048
     Dates: start: 20210604
  11. DEXAMETHASONE [Suspect]
     Active Substance: DEXAMETHASONE
     Dosage: 20 MG, CYC
     Route: 048
     Dates: start: 20210608
  12. DEXAMETHASONE [Suspect]
     Active Substance: DEXAMETHASONE
     Dosage: 20 MG, CYC
     Route: 048
     Dates: start: 20210611
  13. DEXAMETHASONE [Suspect]
     Active Substance: DEXAMETHASONE
     Dosage: 20 MG, CYC (DAYS 1, 2, 4, 5, 8, 9, 11, 12)
     Route: 048
     Dates: start: 20210621, end: 20210703
  14. DEXAMETHASONE [Suspect]
     Active Substance: DEXAMETHASONE
     Dosage: 20 MG, CYC
     Route: 048
     Dates: start: 20210712
  15. DEXAMETHASONE [Suspect]
     Active Substance: DEXAMETHASONE
     Dosage: 20 MG, CYC
     Route: 048
     Dates: start: 20210716
  16. DEXAMETHASONE [Suspect]
     Active Substance: DEXAMETHASONE
     Dosage: 20 MG, CYC
     Route: 048
     Dates: start: 20210719
  17. DEXAMETHASONE [Suspect]
     Active Substance: DEXAMETHASONE
     Dosage: 20 MG, CYC
     Route: 048
     Dates: start: 20210723, end: 20210724
  18. DEXAMETHASONE [Suspect]
     Active Substance: DEXAMETHASONE
     Dosage: 20 MG, CYC
     Route: 048
     Dates: start: 20210803, end: 20210831
  19. DEXAMETHASONE [Suspect]
     Active Substance: DEXAMETHASONE
     Dosage: 20 MG, CYC
     Route: 048
     Dates: start: 20210915, end: 20211026
  20. MORPHINE SULFATE [Concomitant]
     Active Substance: MORPHINE SULFATE
     Indication: Pain prophylaxis
     Dosage: 90 MG, PRN (30MG/2ML)
     Route: 042
     Dates: start: 20211206, end: 20211210
  21. MORPHINE SULFATE [Concomitant]
     Active Substance: MORPHINE SULFATE
     Dosage: 10 MG, PRN (5MG/5ML)
     Route: 042
     Dates: start: 20211206, end: 20211210
  22. BEAROBAN [Concomitant]
     Indication: Prophylaxis
     Dosage: 1 UNK, PRN (10 G)
     Route: 061
     Dates: start: 20211203, end: 20211209
  23. TANTUM [Concomitant]
     Active Substance: BENZYDAMINE HYDROCHLORIDE
     Indication: Inflammation
     Dosage: 1 UNK, TID (1.5 MG)
     Route: 048
     Dates: start: 20211201, end: 20211203
  24. BARACLUDE [Concomitant]
     Active Substance: ENTECAVIR
     Indication: Hepatitis B
     Dosage: 0.5 DF, 1D (1 MG)
     Route: 048
     Dates: start: 20211129, end: 20211205
  25. BARACLUDE [Concomitant]
     Active Substance: ENTECAVIR
     Indication: Hepatic function abnormal
  26. SULFAMETHOXAZOLE\TRIMETHOPRIM [Concomitant]
     Active Substance: SULFAMETHOXAZOLE\TRIMETHOPRIM
     Indication: Antiviral prophylaxis
     Dosage: 1 DF, 1D
     Route: 048
     Dates: start: 20211128, end: 20211128
  27. VITAMIN K1 [Concomitant]
     Active Substance: PHYTONADIONE
     Indication: Activated partial thromboplastin time prolonged
     Dosage: 1 DF, 1D (AMPOULE, 10 MG)
     Route: 015
     Dates: start: 20211125, end: 20211125
  28. VITAMIN K1 [Concomitant]
     Active Substance: PHYTONADIONE
     Indication: Prothrombin time prolonged
  29. MECKOOL [Concomitant]
     Indication: Gastritis prophylaxis
     Dosage: 0.5 DF, 1D (10 MG, AMPOULE)
     Route: 042
     Dates: start: 20211125, end: 20211125
  30. UNI-INFUSION [Concomitant]
     Indication: Hepatic function abnormal
     Dosage: 2 DF, 1D (AMPOULE, 10 ML)
     Route: 042
     Dates: start: 20211124, end: 20211209
  31. GODEX [Concomitant]
     Indication: Hepatic function abnormal
     Dosage: 2 UNK, TID
     Route: 048
     Dates: start: 20211129, end: 20211205
  32. GODEX [Concomitant]
     Dosage: 1 DF, TID
     Route: 048
     Dates: start: 20211123, end: 20211123
  33. AMINO ACIDS\DEXTROSE\ELECTROLYTES NOS\SOYBEAN OIL [Concomitant]
     Active Substance: AMINO ACIDS\DEXTROSE\ELECTROLYTES NOS\SOYBEAN OIL
     Indication: Nutritional supplementation
     Dosage: 1904 ML, 1D
     Route: 042
     Dates: start: 20211123, end: 20211123
  34. PHOSTEN [Concomitant]
     Indication: Nutritional supplementation
     Dosage: 1 DF, 1D (AMPOULE, 20 ML)
     Route: 042
     Dates: start: 20211122, end: 20211123
  35. URSODIOL [Concomitant]
     Active Substance: URSODIOL
     Indication: Hepatic function abnormal
     Dosage: 1 DF, TID (200 MG)
     Route: 048
     Dates: start: 20211129, end: 20211205
  36. URSODIOL [Concomitant]
     Active Substance: URSODIOL
     Dosage: 1 DF, TID (200 MG)
     Route: 048
     Dates: start: 20211122, end: 20211123
  37. ALBUMIN HUMAN [Concomitant]
     Active Substance: ALBUMIN HUMAN
     Indication: Blood albumin abnormal
     Dosage: 1 DF, 1D (BOTTLE, 100ML)
     Route: 042
     Dates: start: 20211122, end: 20211122
  38. TASNA [Concomitant]
     Indication: Gastritis prophylaxis
     Dosage: 2 DF, BID
     Route: 048
     Dates: start: 20211122, end: 20211122
  39. TASNA [Concomitant]
     Dosage: 1 DF, 1D (500 MG)
     Route: 048
     Dates: start: 20211128, end: 20211128
  40. MOSAPRIDE CITRATE [Concomitant]
     Active Substance: MOSAPRIDE CITRATE
     Indication: Gastritis prophylaxis
     Dosage: 5 MG, TID
     Route: 048
     Dates: start: 20211120, end: 20211205
  41. TRESIBA [Concomitant]
     Active Substance: INSULIN DEGLUDEC
     Indication: Diabetes mellitus
     Dosage: 1, UNK, PRN (300IU)
     Route: 058
     Dates: start: 20211119, end: 20211125
  42. HEXAMEDIN [Concomitant]
     Indication: Inflammation
     Dosage: 1 UNK, BID
     Route: 048
     Dates: start: 20211119, end: 20211129
  43. HUMALOG KWIKPEN [Concomitant]
     Active Substance: INSULIN LISPRO
     Indication: Diabetes mellitus
     Dosage: 1 UNK, PRN (300IU)
     Route: 058
     Dates: start: 20211118, end: 20211209
  44. PANTOPRAZOLE SODIUM [Concomitant]
     Active Substance: PANTOPRAZOLE SODIUM
     Indication: Gastritis prophylaxis
     Dosage: 1 DF, 1D (VIAL, 40 MG)
     Route: 042
     Dates: start: 20211118, end: 20211125
  45. ISOPTIN [Concomitant]
     Active Substance: VERAPAMIL HYDROCHLORIDE
     Indication: Arrhythmia
     Dosage: 1 DF, PRN (AMPOULE, 5MG/2ML)
     Route: 042
     Dates: start: 20211116, end: 20211117
  46. HEPARIN [Concomitant]
     Active Substance: HEPARIN SODIUM
     Indication: Anticoagulant therapy
     Dosage: 1 DF, PRN (VIAL, 2500IU/5ML)
     Route: 042
     Dates: start: 20211116, end: 20211125
  47. MORPHINE [Concomitant]
     Active Substance: MORPHINE
     Indication: Pain
     Dosage: 2 MG, PRN
     Route: 042
     Dates: start: 20211206, end: 20211206

REACTIONS (1)
  - Pneumonia [Fatal]

NARRATIVE: CASE EVENT DATE: 20211102
